FAERS Safety Report 6108938-4 (Version None)
Quarter: 2009Q1

REPORT INFORMATION
  Report Type: 
  Country: None (occurrence: None)
  Receive Date: 20090306
  Receipt Date: 20090223
  Transmission Date: 20090719
  Serious: Yes (Hospitalization, Other)
  Sender: FDA-Public Use
  Company Number: 1000003587

PATIENT
  Age: 41 Year
  Sex: Female

DRUGS (4)
  1. ESCITALOPRAM [Suspect]
     Indication: DEPRESSION
     Dosage: 20 MG (10 MG, 2 IN 1 D), ORAL
     Route: 048
     Dates: end: 20090108
  2. STABLON [Concomitant]
  3. SERESTA [Concomitant]
  4. AOTAL [Concomitant]

REACTIONS (10)
  - CHOLESTASIS [None]
  - CYTOLYTIC HEPATITIS [None]
  - FAECAL INCONTINENCE [None]
  - HEADACHE [None]
  - HEPATITIS ALCOHOLIC [None]
  - HEPATOMEGALY [None]
  - HYPOKALAEMIA [None]
  - SENSORIMOTOR DISORDER [None]
  - URINARY INCONTINENCE [None]
  - WITHDRAWAL SYNDROME [None]
